FAERS Safety Report 5392657-6 (Version None)
Quarter: 2007Q3

REPORT INFORMATION
  Report Type: 
  Country: None (occurrence: None)
  Receive Date: 20070720
  Receipt Date: 20070711
  Transmission Date: 20080115
  Serious: Yes (Hospitalization)
  Sender: FDA-Public Use
  Company Number: DE-ABBOTT-07P-062-0356487-00

PATIENT
  Sex: Male
  Weight: 57 kg

DRUGS (1)
  1. ZEMPLAR [Suspect]
     Indication: HYPERPARATHYROIDISM SECONDARY
     Route: 042
     Dates: start: 20061023, end: 20070405

REACTIONS (3)
  - BRONCHOPNEUMONIA [None]
  - CACHEXIA [None]
  - STAPHYLOCOCCAL INFECTION [None]
